FAERS Safety Report 22955385 (Version 2)
Quarter: 2023Q4

REPORT INFORMATION
  Report Type: Spontaneous
  Country: US (occurrence: US)
  Receive Date: 20230918
  Receipt Date: 20231020
  Transmission Date: 20240109
  Serious: No
  Sender: FDA-Public Use
  Company Number: US-Calliditas-2023CAL01190

PATIENT
  Age: 50 Year
  Sex: Female

DRUGS (1)
  1. TARPEYO [Suspect]
     Active Substance: BUDESONIDE
     Indication: IgA nephropathy
     Dosage: 16MG (4MG CAPSULES) ONCE DAILY
     Route: 048
     Dates: start: 202306

REACTIONS (6)
  - Muscle spasms [Unknown]
  - Peripheral swelling [Unknown]
  - Intermenstrual bleeding [Unknown]
  - Amenorrhoea [Unknown]
  - Menstrual disorder [Unknown]
  - Therapy interrupted [Unknown]
